FAERS Safety Report 23124272 (Version 1)
Quarter: 2023Q4

REPORT INFORMATION
  Report Type: Spontaneous
  Country: US (occurrence: None)
  Receive Date: 20231027
  Receipt Date: 20231027
  Transmission Date: 20240110
  Serious: Yes (Hospitalization)
  Sender: FDA-Public Use
  Company Number: None

PATIENT
  Age: 46 Year
  Sex: Female

DRUGS (1)
  1. TECVAYLI [Suspect]
     Active Substance: TECLISTAMAB-CQYV

REACTIONS (6)
  - Cytokine release syndrome [None]
  - Pyrexia [None]
  - Drug ineffective [None]
  - Erythema [None]
  - Headache [None]
  - Febrile neutropenia [None]

NARRATIVE: CASE EVENT DATE: 20230821
